FAERS Safety Report 10496424 (Version 3)
Quarter: 2014Q4

REPORT INFORMATION
  Report Type: Spontaneous
  Country: BR (occurrence: BR)
  Receive Date: 20141003
  Receipt Date: 20141025
  Transmission Date: 20150528
  Serious: Yes (Death)
  Sender: FDA-Public Use
  Company Number: BR-BIOMARINAP-BR-2014-104260

PATIENT
  Age: 1 Year
  Sex: Male
  Weight: 11 kg

DRUGS (13)
  1. BEROTEC HFA [Concomitant]
     Indication: PRODUCT USED FOR UNKNOWN INDICATION
  2. ATROVENT [Concomitant]
     Active Substance: IPRATROPIUM BROMIDE
     Indication: PRODUCT USED FOR UNKNOWN INDICATION
  3. FUROSEMIDE. [Concomitant]
     Active Substance: FUROSEMIDE
     Indication: PRODUCT USED FOR UNKNOWN INDICATION
  4. NAGLAZYME [Suspect]
     Active Substance: GALSULFASE
     Indication: MUCOPOLYSACCHARIDOSIS VI
     Dosage: 10 MG, QW
     Route: 042
     Dates: start: 20130819
  5. TYLENOL [Concomitant]
     Active Substance: ACETAMINOPHEN
     Indication: PREMEDICATION
  6. FLIXOTIDE [Concomitant]
     Active Substance: FLUTICASONE PROPIONATE
     Indication: PRODUCT USED FOR UNKNOWN INDICATION
  7. SPIRONOLACTONE. [Concomitant]
     Active Substance: SPIRONOLACTONE
     Indication: PRODUCT USED FOR UNKNOWN INDICATION
  8. HIXIZINI [Concomitant]
     Indication: PREMEDICATION
  9. DOMPERIDONE [Concomitant]
     Active Substance: DOMPERIDONE
     Indication: PRODUCT USED FOR UNKNOWN INDICATION
  10. BEROTEC HFA [Concomitant]
     Indication: PREMEDICATION
  11. ATROVENT [Concomitant]
     Active Substance: IPRATROPIUM BROMIDE
     Indication: PREMEDICATION
     Dosage: UNK
  12. AEROLIN [Concomitant]
     Active Substance: ALBUTEROL
  13. BUDESONIDE. [Concomitant]
     Active Substance: BUDESONIDE
     Indication: PREMEDICATION
     Dosage: UNK
     Dates: start: 20130819

REACTIONS (14)
  - Left ventricular hypertrophy [Unknown]
  - Bronchitis [Unknown]
  - Brain death [Unknown]
  - Dyspnoea [Unknown]
  - Respiratory failure [Unknown]
  - Atelectasis [Unknown]
  - Fatigue [Unknown]
  - Tachypnoea [Unknown]
  - Cardiac arrest [Fatal]
  - Asthma [Unknown]
  - Loss of consciousness [Unknown]
  - Cyanosis [Unknown]
  - Influenza like illness [Unknown]
  - Productive cough [Unknown]

NARRATIVE: CASE EVENT DATE: 20141004
